FAERS Safety Report 8287096-4 (Version None)
Quarter: 2012Q2

REPORT INFORMATION
  Report Type: 
  Country: None (occurrence: None)
  Receive Date: 20120416
  Receipt Date: 20120402
  Transmission Date: 20120825
  Serious: Yes (Death)
  Sender: FDA-Public Use
  Company Number: DE-ROCHE-1056036

PATIENT
  Sex: Female
  Weight: 63.4 kg

DRUGS (7)
  1. CANDESARTAN CILEXETIL [Concomitant]
     Dates: start: 20090917
  2. TORSEMIDE [Concomitant]
     Dates: start: 20100821
  3. COLECALCIFEROL [Concomitant]
     Dates: start: 20100526
  4. METOPROLOL TARTRATE [Concomitant]
     Dates: start: 20090730
  5. ALLOPURINOL [Concomitant]
     Dates: start: 20090730
  6. MIRCERA [Suspect]
     Indication: NEPHROGENIC ANAEMIA
     Dosage: DATE OF LAST DOSE PRIOR TO SAE:14/FEB/2012
     Route: 042
     Dates: start: 20111222
  7. ACETYLSALICYLSAURE [Concomitant]
     Dates: start: 20090730

REACTIONS (1)
  - SUDDEN CARDIAC DEATH [None]
